FAERS Safety Report 12429054 (Version 1)
Quarter: 2016Q2

REPORT INFORMATION
  Report Type: Spontaneous
  Country: SE (occurrence: SE)
  Receive Date: 20160602
  Receipt Date: 20160602
  Transmission Date: 20160815
  Serious: Yes (Death, Other)
  Sender: FDA-Public Use
  Company Number: SE-GILEAD-2016-0213508

PATIENT
  Age: 61 Year
  Sex: Male

DRUGS (7)
  1. BEHEPAN                            /00056201/ [Concomitant]
     Active Substance: CYANOCOBALAMIN
  2. SOVALDI [Suspect]
     Active Substance: SOFOSBUVIR
     Indication: HEPATITIS C
     Dosage: 400 MG, UNK
     Route: 048
     Dates: start: 20140305, end: 20140901
  3. INDERAL [Concomitant]
     Active Substance: PROPRANOLOL HYDROCHLORIDE
  4. DUROFERON [Concomitant]
     Active Substance: FERROUS SULFATE
  5. FOLACIN                            /00024201/ [Concomitant]
     Active Substance: FOLIC ACID
  6. RIBAVIRIN. [Concomitant]
     Active Substance: RIBAVIRIN
     Indication: HEPATITIS C
     Dosage: UNK
     Route: 065
     Dates: start: 20140503, end: 20140901
  7. OMEPRAZOL                          /00661201/ [Concomitant]
     Active Substance: OMEPRAZOLE

REACTIONS (4)
  - Fatigue [Unknown]
  - Hepatic cancer metastatic [Not Recovered/Not Resolved]
  - Anaemia [Unknown]
  - Upper gastrointestinal haemorrhage [Fatal]
